FAERS Safety Report 9302641 (Version 2)
Quarter: 2013Q2

REPORT INFORMATION
  Report Type: Spontaneous
  Country: GB (occurrence: None)
  Receive Date: 20130517
  Receipt Date: 20130604
  Transmission Date: 20140414
  Serious: Yes (Death, Hospitalization, Other)
  Sender: FDA-Public Use
  Company Number: 2013P1006079

PATIENT
  Age: 59 Year
  Sex: Female

DRUGS (1)
  1. GLYBURIDE [Suspect]
     Indication: SKIN DISORDER

REACTIONS (5)
  - Pneumonia [None]
  - Brain oedema [None]
  - Brain injury [None]
  - Encephalopathy [None]
  - Hypoglycaemia [None]
